FAERS Safety Report 8963204 (Version 1)
Quarter: 2012Q4

REPORT INFORMATION
  Report Type: 
  Country: US (occurrence: US)
  Receive Date: 20121214
  Receipt Date: 20121214
  Transmission Date: 20130627
  Serious: Yes (Other)
  Sender: FDA-Public Use
  Company Number: US-ELI_LILLY_AND_COMPANY-US201212001781

PATIENT
  Sex: Female

DRUGS (2)
  1. HUMALOG LISPRO [Suspect]
     Dosage: UNK, unknown
  2. LANTUS [Concomitant]
     Indication: TYPE 2 DIABETES MELLITUS
     Dosage: 40 u, qd
     Route: 058

REACTIONS (4)
  - Osteitis deformans [Unknown]
  - Osteoporosis [Unknown]
  - Hypoacusis [Not Recovered/Not Resolved]
  - Bone pain [Unknown]
